FAERS Safety Report 5046228-1 (Version None)
Quarter: 2006Q2

REPORT INFORMATION
  Report Type: 
  Country: None (occurrence: None)
  Receive Date: 20060629
  Receipt Date: 20060628
  Transmission Date: 20061013
  Serious: Yes (Other)
  Sender: FDA-Public Use
  Company Number: 006608

PATIENT
  Age: 32 Year
  Sex: Female

DRUGS (4)
  1. DIDANOSINE [Suspect]
     Indication: PREGNANCY
     Dosage: 1 CAPS, QD, ORAL
     Route: 048
     Dates: start: 20050627, end: 20051116
  2. DIDANOSINE [Suspect]
     Indication: SYSTEMIC ANTIVIRAL TREATMENT
     Dosage: 1 CAPS, QD, ORAL
     Route: 048
     Dates: start: 20050627, end: 20051116
  3. ATAZANAVIR SULFATE [Suspect]
     Indication: SYSTEMIC ANTIVIRAL TREATMENT
     Dosage: 400 MG, QD, ORAL
     Route: 048
     Dates: start: 20050627, end: 20051116
  4. EMTRICITABINE(EMTRICITABINE) [Concomitant]
     Indication: SYSTEMIC ANTIVIRAL TREATMENT
     Dosage: 200 MG, QD, ORAL
     Route: 048
     Dates: start: 20050627, end: 20051116

REACTIONS (2)
  - ABORTION SPONTANEOUS [None]
  - DRUG EXPOSURE DURING PREGNANCY [None]
